FAERS Safety Report 18262868 (Version 1)
Quarter: 2020Q3

REPORT INFORMATION
  Report Type: Spontaneous
  Country: JP (occurrence: JP)
  Receive Date: 20200914
  Receipt Date: 20200914
  Transmission Date: 20201103
  Serious: Yes (Death, Hospitalization, Other)
  Sender: FDA-Public Use
  Company Number: JP-PFIZER INC-2020353961

PATIENT
  Age: 80 Year
  Sex: Male

DRUGS (1)
  1. SUTENT [Suspect]
     Active Substance: SUNITINIB MALATE
     Dosage: 37.5 MG/DAY, CYCLIC
     Route: 048
     Dates: start: 20200814, end: 20200824

REACTIONS (7)
  - Death [Fatal]
  - Stomatitis [Unknown]
  - Decreased appetite [Unknown]
  - Blood pressure decreased [Unknown]
  - Physical deconditioning [Unknown]
  - Altered state of consciousness [Unknown]
  - Malaise [Unknown]

NARRATIVE: CASE EVENT DATE: 20200828
